FAERS Safety Report 20040378 (Version 1)
Quarter: 2021Q4

REPORT INFORMATION
  Report Type: Spontaneous
  Country: US (occurrence: None)
  Receive Date: 20211105
  Receipt Date: 20211105
  Transmission Date: 20220303
  Serious: Yes (Hospitalization)
  Sender: FDA-Public Use
  Company Number: None

PATIENT
  Sex: Female
  Weight: 45.36 kg

DRUGS (7)
  1. AZACITIDINE [Suspect]
     Active Substance: AZACITIDINE
     Indication: Refractory anaemia with an excess of blasts
     Dosage: OTHER FREQUENCY : QW 21D ON;?OTHER ROUTE : IV;?
     Route: 050
  2. ALLOPURINOL [Concomitant]
     Active Substance: ALLOPURINOL
  3. ARANESP [Concomitant]
     Active Substance: DARBEPOETIN ALFA
  4. GRANISETRON [Concomitant]
     Active Substance: GRANISETRON
  5. NEULASTA [Concomitant]
     Active Substance: PEGFILGRASTIM
  6. PALONOSETRON [Concomitant]
     Active Substance: PALONOSETRON
  7. SODIUM CHLORIDE [Concomitant]
     Active Substance: SODIUM CHLORIDE

REACTIONS (1)
  - Hospitalisation [None]
